FAERS Safety Report 7338926-1 (Version None)
Quarter: 2011Q1

REPORT INFORMATION
  Report Type: 
  Country: None (occurrence: None)
  Receive Date: 20110308
  Receipt Date: 20110301
  Transmission Date: 20110831
  Serious: Yes (Hospitalization, Other)
  Sender: FDA-Public Use
  Company Number: FR-PERRIGO-11FR001685

PATIENT
  Age: 39 Year
  Sex: Female

DRUGS (1)
  1. IBUPROFEN [Suspect]
     Indication: ARTHRALGIA
     Dosage: UNK
     Route: 048

REACTIONS (2)
  - SYSTEMIC LUPUS ERYTHEMATOSUS [None]
  - MENINGITIS ASEPTIC [None]
